FAERS Safety Report 6482820-5 (Version None)
Quarter: 2009Q4

REPORT INFORMATION
  Report Type: 
  Country: None (occurrence: None)
  Receive Date: 20091209
  Receipt Date: 20091201
  Transmission Date: 20100525
  Serious: Yes (Other)
  Sender: FDA-Public Use
  Company Number: US-JNJFOC-20091101298

PATIENT
  Sex: Male
  Weight: 86.18 kg

DRUGS (1)
  1. LEVAQUIN [Suspect]
     Indication: PNEUMONIA
     Route: 048
     Dates: start: 20091005

REACTIONS (6)
  - ARTHRALGIA [None]
  - C-REACTIVE PROTEIN INCREASED [None]
  - PROSTATIC SPECIFIC ANTIGEN INCREASED [None]
  - TENDON DISORDER [None]
  - TENDON PAIN [None]
  - TENDONITIS [None]
